FAERS Safety Report 5058256-0 (Version None)
Quarter: 2006Q2

REPORT INFORMATION
  Report Type: 
  Country: None (occurrence: None)
  Receive Date: 20060622
  Receipt Date: 20060209
  Transmission Date: 20061013
  Serious: Yes (Hospitalization)
  Sender: FDA-Public Use
  Company Number: US-JNJFOC-20060203344

PATIENT
  Age: 39 Year
  Sex: Female
  Weight: 53.5244 kg

DRUGS (4)
  1. DURAGESIC-100 [Suspect]
     Indication: PAIN
     Dosage: 50 UG/HR 1 IN 72 HOUR TRANSDERMAL
     Route: 062
     Dates: start: 20050202
  2. XANAX [Concomitant]
  3. PHENERGAN () PROMETHAZINE HYDROCHLORIDE [Concomitant]
  4. SOMA [Concomitant]

REACTIONS (1)
  - BACK PAIN [None]
